FAERS Safety Report 5894735-1 (Version None)
Quarter: 2008Q3

REPORT INFORMATION
  Report Type: 
  Country: None (occurrence: None)
  Receive Date: 20080924
  Receipt Date: 20080714
  Transmission Date: 20090109
  Serious: No
  Sender: FDA-Public Use
  Company Number: US-ASTRAZENECA-2008UW11029

PATIENT
  Age: 41 Year
  Sex: Female
  Weight: 74.8 kg

DRUGS (5)
  1. SEROQUEL [Suspect]
     Indication: BIPOLAR I DISORDER
     Route: 048
     Dates: start: 20061201, end: 20080501
  2. SEROQUEL [Suspect]
     Route: 048
     Dates: start: 20080501
  3. COLAZAL [Concomitant]
  4. SYNTHROID [Concomitant]
  5. DEPAKOTE [Concomitant]

REACTIONS (8)
  - CONSTIPATION [None]
  - DRUG INEFFECTIVE [None]
  - DYSKINESIA [None]
  - HAEMATOCHEZIA [None]
  - HYPOAESTHESIA [None]
  - JOINT STIFFNESS [None]
  - MUSCULOSKELETAL STIFFNESS [None]
  - SOMNOLENCE [None]
